FAERS Safety Report 15285994 (Version 1)
Quarter: 2018Q3

REPORT INFORMATION
  Report Type: Spontaneous
  Country: BE (occurrence: BE)
  Receive Date: 20180816
  Receipt Date: 20180816
  Transmission Date: 20181010
  Serious: Yes (Other)
  Sender: FDA-Public Use
  Company Number: BE-TEVA-2018-BE-942038

PATIENT
  Sex: Female

DRUGS (1)
  1. MOXIFLOXACINE [Suspect]
     Active Substance: MOXIFLOXACIN
     Route: 048

REACTIONS (2)
  - Hypotonia [Unknown]
  - Lacrimation increased [Unknown]
